FAERS Safety Report 17225892 (Version 3)
Quarter: 2020Q1

REPORT INFORMATION
  Report Type: Spontaneous
  Country: GB (occurrence: GB)
  Receive Date: 20200102
  Receipt Date: 20200204
  Transmission Date: 20200409
  Serious: Yes (Life-Threatening, Hospitalization, Other)
  Sender: FDA-Public Use
  Company Number: GB-TAKEDA-2019TEU016041

PATIENT
  Age: 97 Year
  Sex: Female

DRUGS (10)
  1. AZYTER [Interacting]
     Active Substance: AZITHROMYCIN ANHYDROUS
     Dosage: UNK
     Route: 047
     Dates: start: 20200102
  2. TORASEMIDE [Concomitant]
     Active Substance: TORSEMIDE
     Indication: DIURETIC THERAPY
     Dosage: UNK
     Route: 065
  3. COLCHICINE. [Concomitant]
     Active Substance: COLCHICINE
     Indication: PRODUCT USED FOR UNKNOWN INDICATION
     Dosage: UNK
     Route: 065
  4. AZYTER [Interacting]
     Active Substance: AZITHROMYCIN ANHYDROUS
     Indication: BLEPHARITIS
     Dosage: UNK
     Route: 047
     Dates: start: 20191129
  5. ELIQUIS [Concomitant]
     Active Substance: APIXABAN
     Indication: PRODUCT USED FOR UNKNOWN INDICATION
     Dosage: UNK
     Route: 065
  6. FUROSEMIDE. [Concomitant]
     Active Substance: FUROSEMIDE
     Indication: DIURETIC THERAPY
     Dosage: 100 MILLIGRAM, QD
     Route: 065
  7. LANSOPRAZOLE. [Suspect]
     Active Substance: LANSOPRAZOLE
     Indication: PRODUCT USED FOR UNKNOWN INDICATION
     Dosage: UNK
     Route: 048
     Dates: start: 20191214, end: 20191214
  8. AZYTER [Interacting]
     Active Substance: AZITHROMYCIN ANHYDROUS
     Indication: INFECTION
     Dosage: UNK
     Route: 047
     Dates: start: 20191211
  9. PRADAXA [Concomitant]
     Active Substance: DABIGATRAN ETEXILATE MESYLATE
     Indication: ANTICOAGULANT THERAPY
     Dosage: UNK
     Route: 065
  10. DIGOXIN. [Concomitant]
     Active Substance: DIGOXIN
     Indication: ATRIAL FIBRILLATION
     Dosage: UNK
     Route: 065

REACTIONS (16)
  - Systemic lupus erythematosus [Unknown]
  - Eye pain [Unknown]
  - Ocular hyperaemia [Recovered/Resolved]
  - Genital burning sensation [Unknown]
  - Rash [Recovered/Resolved]
  - Hypersensitivity [Unknown]
  - Sudden visual loss [Recovered/Resolved]
  - Product use in unapproved indication [Unknown]
  - Drug interaction [Unknown]
  - Diarrhoea [Recovering/Resolving]
  - Eye irritation [Unknown]
  - Peripheral swelling [Recovered/Resolved]
  - Incorrect product administration duration [Unknown]
  - Inappropriate schedule of product administration [Unknown]
  - Eye swelling [Recovered/Resolved]
  - Erythema [Recovered/Resolved]

NARRATIVE: CASE EVENT DATE: 20191129
